FAERS Safety Report 24009294 (Version 1)
Quarter: 2024Q2

REPORT INFORMATION
  Report Type: Spontaneous
  Country: JP (occurrence: None)
  Receive Date: 20240625
  Receipt Date: 20240625
  Transmission Date: 20240716
  Serious: Yes (Hospitalization)
  Sender: FDA-Public Use
  Company Number: JP-MLMSERVICE-20240620-PI098421-00125-2

PATIENT
  Age: 82 Year
  Sex: Female

DRUGS (15)
  1. STALEVO [Suspect]
     Active Substance: CARBIDOPA\ENTACAPONE\LEVODOPA
     Indication: Parkinson^s disease
     Dosage: LEVODOPA 100 MG, CARBIDOPA 10 MG, ENTACAPONE 100 MG, AFTER MEAL
     Dates: end: 2023
  2. ZONISAMIDE [Suspect]
     Active Substance: ZONISAMIDE
     Indication: Parkinson^s disease
     Dosage: AFTER BREAKFAST
     Dates: end: 2023
  3. DONEPEZIL [Suspect]
     Active Substance: DONEPEZIL\DONEPEZIL HYDROCHLORIDE
     Indication: Dementia Alzheimer^s type
     Dosage: AFTER BREAKFAST
     Dates: end: 2023
  4. RISEDRONATE SODIUM [Concomitant]
     Active Substance: RISEDRONATE SODIUM
     Indication: Osteoporosis
     Dates: start: 2007, end: 20231007
  5. MAGNESIUM OXIDE [Concomitant]
     Active Substance: MAGNESIUM OXIDE
     Indication: Constipation
     Dosage: AFTER BREAKFAST AND DINNER
  6. METHYLCOBALAMIN [Concomitant]
     Active Substance: METHYLCOBALAMIN
     Indication: Hypoaesthesia
     Dosage: AFTER MEAL
  7. ACETAMINOPHEN [Concomitant]
     Active Substance: ACETAMINOPHEN
     Indication: Inflammation
     Dosage: AFTER MEAL
  8. CRESTOR [Concomitant]
     Active Substance: ROSUVASTATIN CALCIUM
     Indication: Blood cholesterol increased
     Dosage: AFTER BREAKFAST
  9. RABEPRAZOLE SODIUM [Concomitant]
     Active Substance: RABEPRAZOLE SODIUM
     Indication: Oesophagitis
     Dosage: AFTER BREAKFAST
  10. MOSAPRIDE [Concomitant]
     Active Substance: MOSAPRIDE
     Indication: Gastritis
     Dosage: AFTER MEAL
  11. CARBIDOPA\LEVODOPA [Concomitant]
     Active Substance: CARBIDOPA\LEVODOPA
     Indication: Parkinson^s disease
     Dosage: (UPON WAKING UP)
  12. CARBIDOPA AND LEVODOPA [Concomitant]
     Active Substance: CARBIDOPA\LEVODOPA
     Indication: Parkinson^s disease
  13. HERBALS [Concomitant]
     Active Substance: HERBALS
     Indication: Abdominal distension
     Dosage: AFTER MEAL
  14. MIRABEGRON [Concomitant]
     Active Substance: MIRABEGRON
     Indication: Hypertonic bladder
     Dosage: AFTER BREAKFAST
  15. HERBALS [Concomitant]
     Active Substance: HERBALS
     Indication: Mental disorder
     Dosage: AFTER MEAL

REACTIONS (2)
  - Delusion [Recovered/Resolved]
  - Hallucination [Recovered/Resolved]

NARRATIVE: CASE EVENT DATE: 20210101
